FAERS Safety Report 6598091-5 (Version None)
Quarter: 2010Q1

REPORT INFORMATION
  Report Type: 
  Country: None (occurrence: None)
  Receive Date: 20100224
  Receipt Date: 20050114
  Transmission Date: 20100710
  Serious: No
  Sender: FDA-Public Use
  Company Number: US-ALLERGAN-200501087

PATIENT
  Age: 46 Year
  Sex: Female

DRUGS (2)
  1. BOTULINUM TOXIN TYPE A [Suspect]
     Indication: SKIN WRINKLING
     Dosage: 20UNITS, PRN
     Route: 030
  2. INJECTABLE FILLER [Suspect]
     Indication: SKIN WRINKLING

REACTIONS (1)
  - TYPE IV HYPERSENSITIVITY REACTION [None]
